FAERS Safety Report 25539998 (Version 1)
Quarter: 2025Q3

REPORT INFORMATION
  Report Type: Spontaneous
  Country: CN (occurrence: CN)
  Receive Date: 20250710
  Receipt Date: 20250710
  Transmission Date: 20251021
  Serious: Yes (Other)
  Sender: ELI LILLY AND COMPANY
  Company Number: CN-Merck Healthcare KGaA-2025032981

PATIENT
  Age: 43 Year
  Sex: Male
  Weight: 60 kg

DRUGS (4)
  1. ERBITUX [Suspect]
     Active Substance: CETUXIMAB
     Indication: Colorectal neoplasm
     Dosage: 800 MG, UNK
     Route: 041
     Dates: start: 20250425, end: 20250425
  2. IRINOTECAN HYDROCHLORIDE [Suspect]
     Active Substance: IRINOTECAN HYDROCHLORIDE
     Indication: Colorectal neoplasm
     Dosage: 200 MG, DAILY
     Route: 041
     Dates: start: 20250425, end: 20250425
  3. FLUOROURACIL [Suspect]
     Active Substance: FLUOROURACIL
     Indication: Colorectal neoplasm
     Dosage: 400 MG, DAILY
     Route: 041
     Dates: start: 20250425, end: 20250425
  4. FLUOROURACIL [Suspect]
     Active Substance: FLUOROURACIL
     Dosage: 2500 MG, QOD
     Route: 042
     Dates: start: 20250425, end: 20250426

REACTIONS (1)
  - Myelosuppression [Unknown]

NARRATIVE: CASE EVENT DATE: 20250510
